FAERS Safety Report 8564667-9 (Version None)
Quarter: 2012Q3

REPORT INFORMATION
  Report Type: 
  Country: None (occurrence: None)
  Receive Date: 20120803
  Receipt Date: 20120720
  Transmission Date: 20120928
  Serious: Yes (Other)
  Sender: FDA-Public Use
  Company Number: GB-MYLANLABS-2012S1014947

PATIENT
  Age: 52 Year
  Sex: Male

DRUGS (4)
  1. GABAPENTIN [Suspect]
     Indication: PAIN
     Dosage: DOSE UNIT:1500 UNKNOWN
     Route: 048
     Dates: start: 20110809
  2. GABAPENTIN [Suspect]
     Dosage: DOSE UNIT:300 UNKNOWN
     Route: 048
     Dates: start: 20110725
  3. OXYCONTIN [Concomitant]
     Indication: PAIN
  4. CITALOPRAM HYDROBROMIDE [Concomitant]
     Indication: MOOD ALTERED
     Dates: start: 20110808

REACTIONS (4)
  - ANXIETY [None]
  - SEDATION [None]
  - SUICIDAL IDEATION [None]
  - DEPRESSED MOOD [None]
